FAERS Safety Report 16536442 (Version 3)
Quarter: 2019Q3

REPORT INFORMATION
  Report Type: Spontaneous
  Country: JP (occurrence: JP)
  Receive Date: 20190706
  Receipt Date: 20190729
  Transmission Date: 20191004
  Serious: Yes (Other)
  Sender: FDA-Public Use
  Company Number: JP-AMGEN-JPNSP2019108662

PATIENT
  Age: 7 Decade
  Sex: Male

DRUGS (9)
  1. CALCIUM LEVOFOLINATE [Concomitant]
     Active Substance: LEVOLEUCOVORIN CALCIUM
     Indication: COLON CANCER STAGE IV
     Dosage: UNK
     Route: 041
     Dates: start: 201411
  2. FLUOROURACIL. [Concomitant]
     Active Substance: FLUOROURACIL
     Indication: COLON CANCER STAGE IV
     Dosage: UNK
     Route: 040
     Dates: start: 201411
  3. FLUOROURACIL. [Concomitant]
     Active Substance: FLUOROURACIL
     Dosage: UNK
     Route: 041
     Dates: start: 20160301
  4. FLUOROURACIL. [Concomitant]
     Active Substance: FLUOROURACIL
     Dosage: UNK
     Route: 041
     Dates: start: 201411
  5. FLUOROURACIL. [Concomitant]
     Active Substance: FLUOROURACIL
     Dosage: UNK
     Route: 040
     Dates: start: 20160301
  6. CALCIUM LEVOFOLINATE [Concomitant]
     Active Substance: LEVOLEUCOVORIN CALCIUM
     Dosage: UNK
     Route: 041
     Dates: start: 20160301
  7. VECTIBIX [Suspect]
     Active Substance: PANITUMUMAB
     Indication: COLON CANCER STAGE IV
     Dosage: UNK
     Route: 041
     Dates: start: 20160301
  8. VECTIBIX [Suspect]
     Active Substance: PANITUMUMAB
     Dosage: UNK
     Route: 041
     Dates: start: 201706
  9. IRINOTECAN HYDROCHLORIDE. [Concomitant]
     Active Substance: IRINOTECAN HYDROCHLORIDE
     Indication: COLON CANCER STAGE IV
     Dosage: UNK
     Route: 041
     Dates: start: 20160301

REACTIONS (6)
  - Dry skin [Recovered/Resolved]
  - Dermatitis acneiform [Recovered/Resolved]
  - Colon cancer stage IV [Unknown]
  - Pruritus [Recovered/Resolved]
  - Disease progression [Unknown]
  - Paronychia [Recovered/Resolved]

NARRATIVE: CASE EVENT DATE: 2016
